FAERS Safety Report 21484626 (Version 1)
Quarter: 2022Q4

REPORT INFORMATION
  Report Type: Spontaneous
  Country: US (occurrence: US)
  Receive Date: 20221020
  Receipt Date: 20221020
  Transmission Date: 20230113
  Serious: Yes (Death, Other)
  Sender: FDA-Public Use
  Company Number: US-MICRO LABS LIMITED-ML2022-05202

PATIENT
  Age: 37 Year
  Sex: Female

DRUGS (3)
  1. DIPHENHYDRAMINE HYDROCHLORIDE [Suspect]
     Active Substance: DIPHENHYDRAMINE HYDROCHLORIDE
  2. FENTANYL [Suspect]
     Active Substance: FENTANYL
  3. METHAMPHETAMINE [Suspect]
     Active Substance: METHAMPHETAMINE

REACTIONS (3)
  - Drowning [Fatal]
  - Toxicity to various agents [Fatal]
  - Overdose [Fatal]
